FAERS Safety Report 8345271-4 (Version None)
Quarter: 2012Q2

REPORT INFORMATION
  Report Type: 
  Country: None (occurrence: None)
  Receive Date: 20120508
  Receipt Date: 20120502
  Transmission Date: 20120825
  Serious: Yes (Hospitalization)
  Sender: FDA-Public Use
  Company Number: PHHY2012FR038075

PATIENT
  Sex: Female

DRUGS (8)
  1. LORAZEPAM [Suspect]
     Indication: DEPRESSION
     Dates: start: 20120112, end: 20120113
  2. AMOXICILLIN [Concomitant]
     Dosage: 2 DF, BID
     Dates: end: 20120105
  3. LEVOTHYROXINE SODIUM [Concomitant]
     Dosage: 100 UG, QD
     Route: 048
  4. FOLATE SODIUM [Concomitant]
     Dosage: 1 DF, QD
  5. NICARDIPINE HYDROCHLORIDE [Suspect]
  6. SPIRONOLACTONE [Suspect]
  7. ALTIZIDE [Suspect]
     Dosage: 1 DF, QD
     Route: 048
  8. FUROSEMIDE [Suspect]
     Dosage: 20 MG, UNK
     Route: 048

REACTIONS (1)
  - FALL [None]
